FAERS Safety Report 19103098 (Version 2)
Quarter: 2022Q1

REPORT INFORMATION
  Report Type: Spontaneous
  Country: US (occurrence: US)
  Receive Date: 20210407
  Receipt Date: 20220311
  Transmission Date: 20220423
  Serious: Yes (Other)
  Sender: FDA-Public Use
  Company Number: US-GLAXOSMITHKLINE-US2021GSK076402

PATIENT
  Sex: Male

DRUGS (8)
  1. ZANTAC [Suspect]
     Active Substance: RANITIDINE HYDROCHLORIDE
     Indication: Ulcer
     Dosage: UNKNOWN AT THIS TIME OVER THE COUNTER
     Route: 065
     Dates: start: 198901, end: 199801
  2. ZANTAC [Suspect]
     Active Substance: RANITIDINE HYDROCHLORIDE
     Indication: Ulcer
  3. ZANTAC [Suspect]
     Active Substance: RANITIDINE HYDROCHLORIDE
     Indication: Ulcer
     Dosage: UNKNOWN AT THIS TIME OVER THE COUNTER
     Route: 065
     Dates: start: 198901, end: 199801
  4. ZANTAC [Suspect]
     Active Substance: RANITIDINE HYDROCHLORIDE
     Indication: Ulcer
  5. RANITIDINE [Suspect]
     Active Substance: RANITIDINE
     Indication: Ulcer
     Dosage: UNK, QD
     Route: 065
     Dates: start: 198901, end: 199801
  6. RANITIDINE [Suspect]
     Active Substance: RANITIDINE
     Indication: Ulcer
  7. RANITIDINE [Suspect]
     Active Substance: RANITIDINE
     Indication: Ulcer
     Dosage: UNK, QD
     Route: 065
     Dates: start: 198901, end: 199801
  8. RANITIDINE [Suspect]
     Active Substance: RANITIDINE
     Indication: Ulcer

REACTIONS (3)
  - Throat cancer [Unknown]
  - Pharyngeal injury [Unknown]
  - Pharyngeal injury [Unknown]
